FAERS Safety Report 5098959-5 (Version None)
Quarter: 2006Q3

REPORT INFORMATION
  Report Type: 
  Country: None (occurrence: None)
  Receive Date: 20060907
  Receipt Date: 20060811
  Transmission Date: 20061208
  Serious: Yes (Other)
  Sender: FDA-Public Use
  Company Number: 2006AP03777

PATIENT
  Age: 77 Year
  Sex: Female
  Weight: 66 kg

DRUGS (12)
  1. BUDAMAX [Suspect]
     Dosage: TWO SPRAYS IN EACH NOSTRIL DAILY
     Route: 045
  2. AVAPRO [Concomitant]
     Indication: HYPERTENSION
     Route: 048
     Dates: start: 19991215
  3. CLOPIDOGREL [Concomitant]
     Indication: CARDIOVASCULAR DISORDER
     Route: 048
     Dates: start: 20060302
  4. FOSAMAX [Concomitant]
     Indication: OSTEOPOROSIS
     Route: 048
     Dates: start: 20060608
  5. NITROSTAT [Concomitant]
     Indication: ANGINA PECTORIS
     Dates: start: 20051118
  6. PANAMAX [Concomitant]
     Indication: ARTHRITIS
     Route: 048
     Dates: start: 20060413
  7. PERSANTIN [Concomitant]
     Indication: CARDIOVASCULAR DISORDER
     Route: 048
     Dates: start: 20020221
  8. SERETIDE [Concomitant]
     Indication: ASTHMA
     Route: 048
     Dates: start: 20040304
  9. TRANSIDERM NITROPATCH [Concomitant]
     Indication: ANGINA PECTORIS
     Route: 062
     Dates: start: 19991209
  10. LIPITOR [Concomitant]
     Indication: HYPERCHOLESTEROLAEMIA
     Route: 048
     Dates: start: 20060209
  11. MOBIC [Concomitant]
     Indication: ARTHRITIS
     Route: 048
     Dates: start: 20041125
  12. NEXIUM [Concomitant]
     Indication: REFLUX OESOPHAGITIS
     Route: 048
     Dates: start: 20021128

REACTIONS (2)
  - ASTHMA [None]
  - CHEST DISCOMFORT [None]
